FAERS Safety Report 12644315 (Version 3)
Quarter: 2016Q3

REPORT INFORMATION
  Report Type: Report from Study
  Country: US (occurrence: US)
  Receive Date: 20160811
  Receipt Date: 20160818
  Transmission Date: 20161109
  Serious: Yes (Hospitalization)
  Sender: FDA-Public Use
  Company Number: US-BRISTOL-MYERS SQUIBB COMPANY-BMS-2016-063753

PATIENT
  Age: 50 Year
  Sex: Female
  Weight: 97.6 kg

DRUGS (11)
  1. SOLU-CORTEF [Concomitant]
     Active Substance: HYDROCORTISONE SODIUM SUCCINATE
     Indication: INFUSION RELATED REACTION
     Dosage: 100 MG, UNK
     Route: 042
     Dates: start: 20160706, end: 20160706
  2. NIVOLUMAB [Suspect]
     Active Substance: NIVOLUMAB
     Dosage: 1 DF, TOTAL
     Route: 065
     Dates: start: 20160706, end: 20160706
  3. NIVOLUMAB [Suspect]
     Active Substance: NIVOLUMAB
     Dosage: 1 DF, TOTAL
     Route: 065
     Dates: start: 20160720, end: 20160720
  4. PLAVIX [Concomitant]
     Active Substance: CLOPIDOGREL BISULFATE
     Indication: CORONARY ARTERY DISEASE
     Dosage: 75 MG, UNK
     Route: 048
     Dates: start: 20160715
  5. CLINDAMYCIN [Concomitant]
     Active Substance: CLINDAMYCIN\CLINDAMYCIN PHOSPHATE
     Indication: RASH
     Dosage: 1 %, UNK
     Route: 061
     Dates: start: 20160701
  6. CLARITIN [Concomitant]
     Active Substance: LORATADINE
     Indication: RASH
     Dosage: 10 MG, UNK
     Route: 048
     Dates: start: 20160701
  7. NIVOLUMAB [Suspect]
     Active Substance: NIVOLUMAB
     Indication: NON-SMALL CELL LUNG CANCER
     Dosage: 1 DF, TOTAL
     Route: 065
     Dates: start: 20160722, end: 20160722
  8. EXTERNAL-ERLOTINIB [Suspect]
     Active Substance: ERLOTINIB
     Indication: NON-SMALL CELL LUNG CANCER
     Dosage: 1 DF, UNK
     Route: 065
     Dates: start: 20160622, end: 20160705
  9. EXTERNAL-ERLOTINIB [Suspect]
     Active Substance: ERLOTINIB
     Dosage: 1 UNK, UNK
     Route: 065
     Dates: start: 20160706, end: 20160719
  10. IMODIUM [Concomitant]
     Active Substance: LOPERAMIDE HYDROCHLORIDE
     Indication: DIARRHOEA
     Dosage: 2 MG, UNK
     Route: 048
     Dates: start: 20160701
  11. BENADRYL [Concomitant]
     Active Substance: DIPHENHYDRAMINE HYDROCHLORIDE
     Indication: INFUSION RELATED REACTION
     Dosage: 25 MG, UNK
     Route: 042
     Dates: start: 20160706, end: 20160706

REACTIONS (1)
  - Pyrexia [Recovered/Resolved]

NARRATIVE: CASE EVENT DATE: 20160726
